FAERS Safety Report 9802799 (Version 1)
Quarter: 2014Q1

REPORT INFORMATION
  Report Type: Spontaneous
  Country: US (occurrence: None)
  Receive Date: 20140106
  Receipt Date: 20140106
  Transmission Date: 20141002
  Serious: Yes (Life-Threatening, Hospitalization, Disabling, Other)
  Sender: FDA-Public Use
  Company Number: None

PATIENT
  Age: 74 Year
  Sex: Female
  Weight: 69.4 kg

DRUGS (3)
  1. CT SCAN DYE [Suspect]
     Indication: DIABETES MELLITUS
     Route: 048
     Dates: start: 20131227, end: 20131231
  2. CT SCAN DYE [Suspect]
     Indication: SCAN WITH CONTRAST
     Route: 048
     Dates: start: 20131227, end: 20131231
  3. METFORMIN [Suspect]
     Indication: DIABETES MELLITUS
     Route: 048
     Dates: start: 20131227, end: 20131231

REACTIONS (12)
  - Visual acuity reduced [None]
  - Conjunctivitis [None]
  - Lactic acidosis [None]
  - Renal failure [None]
  - Blood pressure increased [None]
  - Dialysis [None]
  - Drug interaction [None]
  - Sepsis [None]
  - Cardiac disorder [None]
  - Respiratory disorder [None]
  - Blindness [None]
  - Optic ischaemic neuropathy [None]
